FAERS Safety Report 25798121 (Version 1)
Quarter: 2025Q3

REPORT INFORMATION
  Report Type: Spontaneous
  Country: US (occurrence: US)
  Receive Date: 20250912
  Receipt Date: 20250912
  Transmission Date: 20251021
  Serious: Yes (Other)
  Sender: MERCK SHARP & DOHME LLC
  Company Number: US-009507513-2329069

PATIENT
  Sex: Female

DRUGS (4)
  1. KEYTRUDA [Suspect]
     Active Substance: PEMBROLIZUMAB
     Indication: Ovarian cancer
     Dates: start: 202309, end: 202402
  2. HERCEPTIN [Suspect]
     Active Substance: TRASTUZUMAB
     Indication: Ovarian cancer
  3. LENVIMA [Suspect]
     Active Substance: LENVATINIB
     Indication: Ovarian cancer
     Dates: start: 202309, end: 202402
  4. ENHERTU [Suspect]
     Active Substance: FAM-TRASTUZUMAB DERUXTECAN-NXKI
     Indication: Ovarian cancer

REACTIONS (14)
  - Loss of consciousness [Unknown]
  - Dizziness [Unknown]
  - Arthralgia [Unknown]
  - Drug ineffective [Unknown]
  - Ill-defined disorder [Unknown]
  - Fatigue [Unknown]
  - Carbohydrate antigen 125 increased [Unknown]
  - Asthenia [Unknown]
  - Pain [Unknown]
  - Movement disorder [Unknown]
  - Diarrhoea [Unknown]
  - Nausea [Unknown]
  - Neuropathy peripheral [Unknown]
  - Pain in extremity [Unknown]
